FAERS Safety Report 21985989 (Version 1)
Quarter: 2023Q1

REPORT INFORMATION
  Report Type: Spontaneous
  Country: US (occurrence: None)
  Receive Date: 20230210
  Receipt Date: 20230210
  Transmission Date: 20230418
  Serious: Yes (Hospitalization)
  Sender: FDA-Public Use
  Company Number: None

PATIENT
  Sex: Female

DRUGS (2)
  1. AMBRISENTAN [Suspect]
     Active Substance: AMBRISENTAN
     Indication: Multiple sclerosis
     Dosage: 10 MG ORAL?TAKE 1 TABLET (10 MG TOTAL) BY MOUTH DAILY
     Route: 048
     Dates: start: 20220208
  2. ADCIRCA [Concomitant]
     Active Substance: TADALAFIL

REACTIONS (2)
  - Pulmonary congestion [None]
  - COVID-19 [None]
